FAERS Safety Report 8922146 (Version 2)
Quarter: 2013Q1

REPORT INFORMATION
  Report Type: Report from Study
  Country: FR (occurrence: FR)
  Receive Date: 20121123
  Receipt Date: 20130329
  Transmission Date: 20140127
  Serious: Yes (Hospitalization)
  Sender: FDA-Public Use
  Company Number: FR-009507513-1211FRA008375

PATIENT
  Age: 52 Year
  Sex: Male
  Weight: 101.5 kg

DRUGS (12)
  1. BOCEPREVIR [Suspect]
     Indication: HEPATITIS C
     Dosage: 800 MG, TID
     Route: 048
     Dates: start: 20120309, end: 20121116
  2. COPEGUS [Suspect]
     Indication: HEPATITIS C
     Dosage: 400 MG, QD
     Route: 048
     Dates: start: 20120211, end: 20121116
  3. PEGASYS [Suspect]
     Indication: HEPATITIS C
     Dosage: 90 MICROGRAM, QW
     Route: 058
     Dates: start: 20120211, end: 20121116
  4. NEORECORMON [Concomitant]
     Indication: ANAEMIA
     Dosage: 30000 IU, BIW
     Dates: start: 20120407, end: 20121116
  5. LASILIX [Concomitant]
     Indication: OEDEMA PERIPHERAL
     Dosage: 40 MG, QD
     Dates: start: 20120413, end: 20121116
  6. DIPROSONE (BETAMETHASONE DIPROPIONATE) [Concomitant]
     Indication: PSORIASIS
     Dosage: 1 DF, QD
     Dates: start: 20120423, end: 20121116
  7. REVOLADE [Concomitant]
     Indication: THROMBOCYTOPENIA
     Dosage: 1 DF, QD
     Route: 048
     Dates: start: 20120427, end: 20121116
  8. ALDACTONE [Concomitant]
     Indication: OEDEMA PERIPHERAL
     Dosage: 100 MG, QD
     Dates: start: 20120509, end: 20121116
  9. ALDACTONE [Concomitant]
     Indication: OEDEMA PERIPHERAL
  10. SPECIAFOLDINE [Concomitant]
     Indication: ANAEMIA
     Dosage: 2 DF, TID
     Dates: start: 20120420, end: 20121116
  11. XYZALL [Concomitant]
     Indication: PSORIASIS
     Dosage: 1 DF, QD
     Dates: start: 20120423, end: 20121116
  12. DIFFU-K [Concomitant]
     Indication: HYPOKALAEMIA
     Dosage: 2 DF, TID
     Dates: start: 20120727, end: 20121116

REACTIONS (1)
  - Hepatic encephalopathy [Recovered/Resolved]
